FAERS Safety Report 5436713-2 (Version None)
Quarter: 2007Q3

REPORT INFORMATION
  Report Type: 
  Country: None (occurrence: None)
  Receive Date: 20070831
  Receipt Date: 20070821
  Transmission Date: 20080115
  Serious: Yes (Hospitalization)
  Sender: FDA-Public Use
  Company Number: US-JNJFOC-20070601758

PATIENT
  Sex: Female
  Weight: 92.08 kg

DRUGS (14)
  1. DURAGESIC-100 [Suspect]
     Route: 062
  2. DURAGESIC-100 [Suspect]
     Indication: PAIN
     Route: 062
  3. VITAMIN B-12 [Concomitant]
     Indication: NUTRITIONAL SUPPORT
     Route: 048
  4. DILAUDID [Concomitant]
     Indication: BREAKTHROUGH PAIN
     Route: 048
  5. DILAUDID [Concomitant]
     Indication: PAIN
     Dosage: ONE EVERY 4-6 HOURS
     Route: 048
  6. VICODIN [Concomitant]
     Indication: PAIN
     Route: 048
  7. VALIUM [Concomitant]
     Indication: MUSCLE SPASMS
     Route: 048
  8. VALIUM [Concomitant]
     Indication: ANXIETY
     Route: 048
  9. LISINOPRIL [Concomitant]
     Indication: BLOOD PRESSURE
     Route: 048
  10. ARTHROTEC [Concomitant]
     Indication: PAIN
     Route: 048
  11. NEURONTIN [Concomitant]
     Indication: NEURALGIA
     Dosage: 2X 600MG AT BEDTIME
     Route: 048
  12. NEURONTIN [Concomitant]
     Indication: PAIN
     Route: 048
  13. ZANAFLEX [Concomitant]
     Indication: MUSCLE SPASMS
     Route: 048
  14. BOTOX [Concomitant]
     Indication: PAIN IN EXTREMITY
     Route: 030

REACTIONS (8)
  - APPLICATION SITE RASH [None]
  - GASTROOESOPHAGEAL REFLUX DISEASE [None]
  - INCORRECT DRUG ADMINISTRATION DURATION [None]
  - INTESTINAL OBSTRUCTION [None]
  - MUSCLE SPASMS [None]
  - PHARMACEUTICAL PRODUCT COMPLAINT [None]
  - THERAPEUTIC RESPONSE DECREASED [None]
  - WRONG TECHNIQUE IN DRUG USAGE PROCESS [None]
